FAERS Safety Report 5418789-1 (Version None)
Quarter: 2007Q3

REPORT INFORMATION
  Report Type: 
  Country: None (occurrence: None)
  Receive Date: 20070718
  Receipt Date: 20061211
  Transmission Date: 20080115
  Serious: Yes (Hospitalization, Other)
  Sender: FDA-Public Use
  Company Number: 2006096215

PATIENT
  Age: 68 Year
  Sex: Female
  Weight: 81.6 kg

DRUGS (1)
  1. CELEBREX [Suspect]
     Indication: ARTHRITIS
     Dosage: 200 MG (100 MG, 2 IN 1 D)
     Dates: start: 20040113

REACTIONS (2)
  - DEPRESSION [None]
  - MYOCARDIAL INFARCTION [None]
